FAERS Safety Report 24975404 (Version 4)
Quarter: 2025Q2

REPORT INFORMATION
  Report Type: Spontaneous
  Country: JP (occurrence: JP)
  Receive Date: 20250217
  Receipt Date: 20250603
  Transmission Date: 20250716
  Serious: Yes (Death, Hospitalization)
  Sender: ABBVIE
  Company Number: JP-ABBVIE-6107131

PATIENT
  Age: 80 Year
  Sex: Male
  Weight: 61 kg

DRUGS (11)
  1. GLECAPREVIR\PIBRENTASVIR [Suspect]
     Active Substance: GLECAPREVIR\PIBRENTASVIR
     Indication: Chronic hepatitis C
     Dosage: 3 TABLET
     Route: 048
     Dates: start: 20241211, end: 20241224
  2. REBAMIPIDE [Concomitant]
     Active Substance: REBAMIPIDE
     Indication: Product used for unknown indication
     Route: 048
  3. ALLOPURINOL [Concomitant]
     Active Substance: ALLOPURINOL
     Indication: Product used for unknown indication
     Dosage: 2 TABLET,?FORM STRENGTH: 100 MILLIGRAM,?START DATE TEXT: BEFORE 06-MAY-2023
     Route: 048
  4. DAPAGLIFLOZIN PROPANEDIOL [Concomitant]
     Active Substance: DAPAGLIFLOZIN PROPANEDIOL
     Indication: Product used for unknown indication
     Dosage: 1 TABLET,?FORM STRENGTH: 10 MILLIGRAM?START DATE TEXT: BEFORE 06-MAY-2023
     Route: 048
  5. SACUBITRIL\VALSARTAN [Concomitant]
     Active Substance: SACUBITRIL\VALSARTAN
     Indication: Product used for unknown indication
     Dosage: 200 MILLIGRAM
  6. DAPRODUSTAT [Concomitant]
     Active Substance: DAPRODUSTAT
     Indication: Product used for unknown indication
     Dosage: 1 TABLET,?FORM STRENGTH: 4 MILLIGRAM
     Route: 048
     Dates: start: 202407
  7. AMBROXOL HYDROCHLORIDE [Concomitant]
     Active Substance: AMBROXOL HYDROCHLORIDE
     Indication: Product used for unknown indication
     Dosage: 1 TABLET,?FORM STRENGTH: 45 MILLIGRAM,?START DATE TEXT: BEFORE 06-MAY-2023
     Route: 048
  8. LUBIPROSTONE [Concomitant]
     Active Substance: LUBIPROSTONE
     Indication: Product used for unknown indication
     Dosage: 1 CAPSULE,?FORM STRENGTH: 12 MICROGRAM
     Route: 048
     Dates: start: 202407
  9. BECLOMETHASONE DIPROPIONATE [Concomitant]
     Active Substance: BECLOMETHASONE DIPROPIONATE
     Indication: Product used for unknown indication
     Dosage: 1 INHALATION/TIME,?FORM STRENGTH: 8.7 GRAM?START DATE TEXT: BEFORE 06-MAY-2023, RESPIRATORY (INHA...
  10. EDOXABAN TOSYLATE [Concomitant]
     Active Substance: EDOXABAN TOSYLATE
     Indication: Product used for unknown indication
     Dosage: 1 TABLET
  11. CARBOCYSTEINE [Concomitant]
     Active Substance: CARBOCYSTEINE
     Indication: Product used for unknown indication
     Dates: start: 202410

REACTIONS (8)
  - Oedema peripheral [Fatal]
  - Cardiac failure acute [Fatal]
  - Cardiac failure congestive [Fatal]
  - Cough [Unknown]
  - Gait disturbance [Unknown]
  - Cardiomegaly [Unknown]
  - Pericardial effusion [Unknown]
  - N-terminal prohormone brain natriuretic peptide increased [Unknown]

NARRATIVE: CASE EVENT DATE: 20241201
